FAERS Safety Report 11106381 (Version 2)
Quarter: 2015Q2

REPORT INFORMATION
  Report Type: Spontaneous
  Country: DK (occurrence: IT)
  Receive Date: 20150512
  Receipt Date: 20150601
  Transmission Date: 20150821
  Serious: Yes (Hospitalization, Other)
  Sender: FDA-Public Use
  Company Number: IT-FRI-1000076439

PATIENT
  Age: 54 Year
  Sex: Female

DRUGS (6)
  1. DEPAKIN CHRONO 500MG CP A RILASCIO PROLUNGATO [Suspect]
     Active Substance: VALPROIC ACID
     Indication: DEPRESSION
     Dosage: OVERDOSE: 2500 MG
     Route: 048
     Dates: start: 20150121, end: 20150121
  2. PROZIN 100 MG COMPRESSE RIVESTITE [Suspect]
     Active Substance: CHLORPROMAZINE HYDROCHLORIDE
     Indication: DEPRESSION
     Route: 048
  3. FLUOXETINA CLORIDRATO [Concomitant]
     Indication: DEPRESSION
     Route: 065
  4. LEVOPRAID 25 MG COMPRESSE [Concomitant]
     Indication: PRODUCT USED FOR UNKNOWN INDICATION
     Route: 048
  5. TAVOR 1MG COMPRESSE [Concomitant]
     Indication: DEPRESSION
     Route: 048
  6. CITALOPRAM [Suspect]
     Active Substance: CITALOPRAM HYDROBROMIDE
     Indication: DEPRESSION
     Dosage: OVERDOSE: 280 MG
     Route: 048
     Dates: start: 20150121, end: 20150121

REACTIONS (4)
  - Somnolence [Recovering/Resolving]
  - Toxicity to various agents [Recovering/Resolving]
  - Drug abuse [Recovering/Resolving]
  - Intentional overdose [Recovering/Resolving]

NARRATIVE: CASE EVENT DATE: 20150121
